FAERS Safety Report 10416728 (Version 2)
Quarter: 2014Q4

REPORT INFORMATION
  Report Type: Spontaneous
  Country: US (occurrence: US)
  Receive Date: 20140828
  Receipt Date: 20141027
  Transmission Date: 20150528
  Serious: Yes (Hospitalization)
  Sender: FDA-Public Use
  Company Number: US-ENDO PHARMACEUTICALS INC.-LIDO20140001

PATIENT
  Age: 69 Year
  Sex: Male
  Weight: 83.54 kg

DRUGS (1)
  1. LIDOCAINE HYDROCHLORIDE ORAL TOPICAL SOLUTION .04 [Suspect]
     Active Substance: LIDOCAINE HYDROCHLORIDE
     Indication: BRONCHOSCOPY
     Dates: start: 20140820, end: 20140820

REACTIONS (4)
  - Hypoxia [Recovered/Resolved]
  - Cough [Unknown]
  - Sneezing [Unknown]
  - Dyspnoea [Recovered/Resolved]

NARRATIVE: CASE EVENT DATE: 20140820
